FAERS Safety Report 7338730-4 (Version None)
Quarter: 2011Q1

REPORT INFORMATION
  Report Type: 
  Country: None (occurrence: None)
  Receive Date: 20110308
  Receipt Date: 20110302
  Transmission Date: 20110831
  Serious: Yes (Hospitalization)
  Sender: FDA-Public Use
  Company Number: B0703805A

PATIENT
  Age: 53 Year
  Sex: Male

DRUGS (2)
  1. ZOVIRAX [Suspect]
     Indication: ENCEPHALITIS HERPES
     Dosage: 750MG PER DAY
     Route: 042
     Dates: start: 20110225
  2. FLUCONAZOLE [Concomitant]
     Dosage: 100MG PER DAY
     Route: 042
     Dates: start: 20110226

REACTIONS (1)
  - ENCEPHALOPATHY [None]
